FAERS Safety Report 4790205-2 (Version None)
Quarter: 2005Q4

REPORT INFORMATION
  Report Type: 
  Country: None (occurrence: None)
  Receive Date: 20051006
  Receipt Date: 20050928
  Transmission Date: 20060501
  Serious: Yes (Other)
  Sender: FDA-Public Use
  Company Number: PHBS2005US14323

PATIENT
  Age: 21 Year
  Sex: Male

DRUGS (2)
  1. PINDOLOL [Suspect]
     Indication: HYPERTENSION
  2. LABETALOL [Concomitant]

REACTIONS (3)
  - EXERCISE TOLERANCE DECREASED [None]
  - GYNAECOMASTIA [None]
  - LETHARGY [None]
